FAERS Safety Report 9773534 (Version 1)
Quarter: 2013Q4

REPORT INFORMATION
  Report Type: Spontaneous
  Country: GB (occurrence: None)
  Receive Date: 20131217
  Receipt Date: 20131217
  Transmission Date: 20140711
  Serious: Yes (Disabling)
  Sender: FDA-Public Use
  Company Number: AUR-APL-2013-10441

PATIENT
  Age: 52 Year
  Sex: Male

DRUGS (2)
  1. OLANZAPINE (OLANZAPINE) [Suspect]
     Indication: MANIA
     Route: 048
     Dates: start: 20130901, end: 20131115
  2. PROPRANOLOL (PROPRANOLOL) [Concomitant]

REACTIONS (8)
  - Tremor [None]
  - Weight decreased [None]
  - Pyrexia [None]
  - Hyperhidrosis [None]
  - Agitation [None]
  - Coordination abnormal [None]
  - Abnormal behaviour [None]
  - Dystonia [None]
